FAERS Safety Report 15406215 (Version 2)
Quarter: 2018Q4

REPORT INFORMATION
  Report Type: Report from Study
  Country: None (occurrence: FR)
  Receive Date: 20180920
  Receipt Date: 20181003
  Transmission Date: 20190204
  Serious: Yes (Hospitalization)
  Sender: FDA-Public Use
  Company Number: FR-ABBVIE-18S-056-2490594-00

PATIENT
  Age: 81 Year
  Sex: Female
  Weight: 44 kg

DRUGS (1)
  1. DUODOPA [Suspect]
     Active Substance: CARBIDOPA\LEVODOPA
     Indication: PARKINSON^S DISEASE
     Dosage: ED : 2 ML, CONTINUOUS FLOW RATE (DURING THE DAY): 1.6 ML/H, DAY RHYTHM : 7 AM TO 19 PM
     Route: 050
     Dates: start: 20150126

REACTIONS (4)
  - Weight decreased [Not Recovered/Not Resolved]
  - Asthenia [Not Recovered/Not Resolved]
  - Dysphagia [Not Recovered/Not Resolved]
  - Malnutrition [Not Recovered/Not Resolved]
